FAERS Safety Report 6633267-X (Version None)
Quarter: 2010Q1

REPORT INFORMATION
  Report Type: 
  Country: None (occurrence: None)
  Receive Date: 20100312
  Receipt Date: 20100304
  Transmission Date: 20100710
  Serious: Yes (Hospitalization, Other)
  Sender: FDA-Public Use
  Company Number: US-PFIZER INC-2010029435

PATIENT
  Sex: Female
  Weight: 40.8 kg

DRUGS (8)
  1. LIPITOR [Suspect]
     Indication: BLOOD CHOLESTEROL
     Dosage: 5 MG DAILY
  2. METOPROLOL [Suspect]
     Dosage: 12.5 MG, 2X/DAY
     Dates: start: 20080101
  3. ZONISAMIDE [Concomitant]
     Indication: CONVULSION
     Dosage: UNK
  4. ISOSORBIDE [Concomitant]
     Dosage: UNK
  5. LEVOTHYROXINE [Concomitant]
     Indication: THYROID DISORDER
     Dosage: UNK
  6. DIGOXIN [Concomitant]
     Dosage: UNK
  7. WARFARIN [Concomitant]
     Dosage: UNK
  8. TOVIAZ [Concomitant]
     Dosage: UNK

REACTIONS (2)
  - CEREBROVASCULAR ACCIDENT [None]
  - SURGERY [None]
